FAERS Safety Report 6681992-7 (Version None)
Quarter: 2010Q2

REPORT INFORMATION
  Report Type: 
  Country: None (occurrence: None)
  Receive Date: 20100414
  Receipt Date: 20100414
  Transmission Date: 20101027
  Serious: Yes (Other)
  Sender: FDA-Public Use
  Company Number: None

PATIENT
  Age: 82 Year
  Sex: Female
  Weight: 79.3795 kg

DRUGS (1)
  1. LISINOPRIL [Suspect]
     Indication: HYPERTENSION
     Dosage: 10 MIL. 1 DAILY MID MARCH, 2010 (1 TAB - FOR 3 DAYS)
     Dates: start: 20100301

REACTIONS (3)
  - DYSSTASIA [None]
  - FEELING ABNORMAL [None]
  - MUSCLE SPASMS [None]
